FAERS Safety Report 6542802-1 (Version None)
Quarter: 2010Q1

REPORT INFORMATION
  Report Type: 
  Country: None (occurrence: None)
  Receive Date: 20100114
  Receipt Date: 20091211
  Transmission Date: 20100710
  Serious: Yes (Other)
  Sender: FDA-Public Use
  Company Number: 230340J09BRA

PATIENT
  Age: 34 Year
  Sex: Female

DRUGS (1)
  1. REBIF [Suspect]
     Indication: RELAPSING-REMITTING MULTIPLE SCLEROSIS
     Dosage: 22 MCG, 3 IN 1 WEEKS
     Dates: start: 20081117

REACTIONS (3)
  - HEADACHE [None]
  - NEOPLASM PROGRESSION [None]
  - SENSATION OF HEAVINESS [None]
